FAERS Safety Report 14829760 (Version 2)
Quarter: 2018Q2

REPORT INFORMATION
  Report Type: Spontaneous
  Country: US (occurrence: US)
  Receive Date: 20180430
  Receipt Date: 20180503
  Transmission Date: 20180711
  Serious: Yes (Hospitalization, Other)
  Sender: FDA-Public Use
  Company Number: US-PFIZER INC-2018174052

PATIENT
  Sex: Female

DRUGS (1)
  1. CHANTIX [Suspect]
     Active Substance: VARENICLINE TARTRATE
     Indication: SMOKING CESSATION THERAPY
     Dosage: UNK

REACTIONS (8)
  - Fall [Unknown]
  - Autoscopy [Unknown]
  - Memory impairment [Unknown]
  - Generalised tonic-clonic seizure [Unknown]
  - Head injury [Unknown]
  - Cardiac arrest [Unknown]
  - Hallucination, visual [Unknown]
  - Respiratory arrest [Unknown]
